FAERS Safety Report 10730943 (Version 2)
Quarter: 2015Q1

REPORT INFORMATION
  Report Type: Spontaneous
  Country: US (occurrence: US)
  Receive Date: 20150122
  Receipt Date: 20150317
  Transmission Date: 20150721
  Serious: Yes (Hospitalization, Other)
  Sender: FDA-Public Use
  Company Number: US-009507513-1501USA008007

PATIENT
  Sex: Female
  Weight: 83.45 kg

DRUGS (2)
  1. ALENDRONATE SODIUM. [Suspect]
     Active Substance: ALENDRONATE SODIUM
     Dosage: 70 MG, UNK
     Dates: start: 20100422, end: 20120204
  2. FOSAMAX [Suspect]
     Active Substance: ALENDRONATE SODIUM
     Indication: OSTEOPOROSIS
     Dosage: 70 MG, QW
     Route: 048
     Dates: start: 2000, end: 2013

REACTIONS (31)
  - Femur fracture [Unknown]
  - Thrombocytopenia [Unknown]
  - Diarrhoea [Unknown]
  - Cerebrovascular accident [Unknown]
  - Biliary colic [Unknown]
  - Haemorrhagic anaemia [Unknown]
  - Medical device removal [Unknown]
  - Sleep apnoea syndrome [Unknown]
  - Hypokalaemia [Unknown]
  - Intramedullary rod insertion [Unknown]
  - Hypotension [Recovered/Resolved]
  - Knee operation [Unknown]
  - Pain in extremity [Recovered/Resolved]
  - Gastric ulcer [Unknown]
  - Low turnover osteopathy [Unknown]
  - Hypercholesterolaemia [Unknown]
  - Biopsy breast [Unknown]
  - Cataract operation [Unknown]
  - Weight decreased [Unknown]
  - Rosacea [Unknown]
  - Gastrooesophageal reflux disease [Unknown]
  - Cholecystectomy [Unknown]
  - Blood glucose abnormal [Unknown]
  - Pain in extremity [Unknown]
  - Postoperative wound infection [Unknown]
  - Cough [Unknown]
  - Rash papular [Unknown]
  - Muscle spasms [Unknown]
  - Hypertension [Unknown]
  - Arthritis [Unknown]
  - Limb operation [Unknown]

NARRATIVE: CASE EVENT DATE: 2000
